FAERS Safety Report 4678097-3 (Version None)
Quarter: 2005Q2

REPORT INFORMATION
  Report Type: 
  Country: None (occurrence: None)
  Receive Date: 20050531
  Receipt Date: 20050531
  Transmission Date: 20051028
  Serious: Yes (Hospitalization, Disabling)
  Sender: FDA-Public Use
  Company Number: None

PATIENT
  Age: 46 Year
  Sex: Male
  Weight: 92.9874 kg

DRUGS (2)
  1. CORDIS DRUG EMITTING STENT [Suspect]
     Indication: CORONARY ARTERY OCCLUSION
     Dosage: 4   INTRACORON
     Route: 022
     Dates: start: 20031218, end: 20031218
  2. CORDIS DRUG EMITTING STENT [Suspect]
     Indication: CORONARY ARTERY OCCLUSION
     Dosage: 4   INTRACORON
     Route: 022
     Dates: start: 20031231, end: 20031231

REACTIONS (2)
  - ANGINA PECTORIS [None]
  - IMPLANT SITE REACTION [None]
